FAERS Safety Report 22838058 (Version 7)
Quarter: 2023Q4

REPORT INFORMATION
  Report Type: Report from Study
  Country: ZA (occurrence: ZA)
  Receive Date: 20230818
  Receipt Date: 20231018
  Transmission Date: 20240110
  Serious: Yes (Other)
  Sender: FDA-Public Use
  Company Number: ZA-PFIZER INC-PV202300140866

PATIENT
  Age: 56 Year
  Sex: Male
  Weight: 45.8 kg

DRUGS (13)
  1. LINEZOLID [Suspect]
     Active Substance: LINEZOLID
     Indication: Tuberculosis
     Dosage: 600 MG, QD - EVERY DAY
     Route: 048
     Dates: start: 20230703, end: 20230814
  2. LINEZOLID [Suspect]
     Active Substance: LINEZOLID
     Dosage: 300 MG, QD - EVERY DAY
     Route: 048
     Dates: start: 20230908
  3. BEDAQUILINE [Suspect]
     Active Substance: BEDAQUILINE
     Indication: Pulmonary tuberculosis
     Dosage: 200 MG, QD - EVERY DAY
     Route: 048
     Dates: start: 20230703, end: 20230814
  4. BEDAQUILINE [Suspect]
     Active Substance: BEDAQUILINE
     Dosage: 200 MG, QD - EVERY DAY
     Route: 048
     Dates: start: 20230818
  5. DELAMANID [Suspect]
     Active Substance: DELAMANID
     Indication: Tuberculosis
     Dosage: 300 MG, QD - EVERY DAY
     Route: 048
     Dates: start: 20230703, end: 20230814
  6. DELAMANID [Suspect]
     Active Substance: DELAMANID
     Dosage: 300 MG, QD - EVERY DAY
     Route: 048
     Dates: start: 20230823
  7. CLOFAZIMINE [Suspect]
     Active Substance: CLOFAZIMINE
     Indication: Tuberculosis
     Dosage: 300 MG, QD - EVERY DAY
     Route: 048
     Dates: start: 20230703, end: 20230716
  8. CLOFAZIMINE [Suspect]
     Active Substance: CLOFAZIMINE
     Dosage: 100 MG, QD - EVERY DAY
     Route: 048
     Dates: start: 20230717, end: 20230813
  9. CLOFAZIMINE [Suspect]
     Active Substance: CLOFAZIMINE
     Dosage: 300 MG, QD - EVERY DAY
     Route: 048
     Dates: start: 20230825
  10. HYDROCHLOROTHIAZIDE [Concomitant]
     Active Substance: HYDROCHLOROTHIAZIDE
     Indication: Hypertension
     Dosage: QD- EVERY DAY
     Route: 048
     Dates: end: 20230814
  11. BECLATE [BECLOMETASONE] [Concomitant]
     Indication: Asthma
     Dosage: PRN - AS NEEDED
     Route: 055
     Dates: end: 20230801
  12. BUDESONIDE [Concomitant]
     Active Substance: BUDESONIDE
     Indication: Asthma
     Dosage: UNK
     Route: 055
     Dates: end: 20230801
  13. VENTIMAX [Concomitant]
     Indication: Asthma
     Dosage: PRN - AS NEEDED
     Route: 055
     Dates: end: 20230801

REACTIONS (1)
  - Electrocardiogram QT prolonged [Recovered/Resolved]

NARRATIVE: CASE EVENT DATE: 20230814
